FAERS Safety Report 15249394 (Version 4)
Quarter: 2018Q4

REPORT INFORMATION
  Report Type: Spontaneous
  Country: IL (occurrence: IL)
  Receive Date: 20180807
  Receipt Date: 20181107
  Transmission Date: 20190204
  Serious: Yes (Hospitalization, Other)
  Sender: FDA-Public Use
  Company Number: IL-AMGEN-ISRSP2018107540

PATIENT
  Age: 3 Year
  Sex: Female
  Weight: 11 kg

DRUGS (12)
  1. BLINCYTO [Suspect]
     Active Substance: BLINATUMOMAB
     Dosage: 2.5 MUG/M2, QD
     Route: 042
     Dates: start: 20180805
  2. FENISTIL [Concomitant]
     Active Substance: DIMETHINDENE
     Indication: SCRATCH
     Dosage: 11 GUTT, AS NECESSARY (SOS)
  3. BLINCYTO [Suspect]
     Active Substance: BLINATUMOMAB
     Indication: PRECURSOR B-LYMPHOBLASTIC LYMPHOMA RECURRENT
     Dosage: 5 MUG/M2, QD
     Route: 042
     Dates: start: 20180725, end: 20180730
  4. BARACLUDE [Concomitant]
     Active Substance: ENTECAVIR
     Indication: CHRONIC HEPATITIS B
     Dosage: 0.35 MG, QD
  5. DEXACORT [Concomitant]
     Active Substance: DEXAMETHASONE SODIUM PHOSPHATE
     Indication: PREMEDICATION
     Dosage: 2.5 MG, ONCE
     Dates: start: 20180725, end: 20180725
  6. BLINCYTO [Suspect]
     Active Substance: BLINATUMOMAB
     Dosage: 15 MUG/M2, QD
     Route: 042
     Dates: start: 20180815
  7. DIPYRONE [Concomitant]
     Active Substance: DIPYRONE
     Dosage: 150 MG, ONCE
     Dates: start: 20180726, end: 20180726
  8. ALLOPURINOL. [Concomitant]
     Active Substance: ALLOPURINOL
     Indication: PROPHYLAXIS
     Dosage: 50 MG, TID
  9. TENOFOVIR [Concomitant]
     Active Substance: TENOFOVIR
     Indication: CHRONIC HEPATITIS B
     Dosage: 100 MG, QD
  10. ZOVIRAX [Concomitant]
     Active Substance: ACYCLOVIR
     Indication: ANTIVIRAL PROPHYLAXIS
     Dosage: 250 MG, TID
  11. LOSEC [Concomitant]
     Active Substance: OMEPRAZOLE
     Dosage: 5 MG, BID
  12. RESPRIM [Concomitant]
     Active Substance: SULFAMETHOXAZOLE\TRIMETHOPRIM
     Indication: ANTIFUNGAL PROPHYLAXIS
     Dosage: 25 MG, BID, TWICE WEEKLY

REACTIONS (2)
  - Diarrhoea haemorrhagic [Recovered/Resolved]
  - Acute lymphocytic leukaemia recurrent [Unknown]

NARRATIVE: CASE EVENT DATE: 20180728
